FAERS Safety Report 4434459-0 (Version None)
Quarter: 2004Q3

REPORT INFORMATION
  Report Type: 
  Country: None (occurrence: None)
  Receive Date: 20040726
  Receipt Date: 20040426
  Transmission Date: 20050211
  Serious: No
  Sender: FDA-Public Use
  Company Number: USA040259561

PATIENT
  Age: 78 Year
  Sex: Female

DRUGS (2)
  1. FORTEO [Suspect]
     Indication: OSTEOPOROSIS
     Dates: start: 20040206
  2. ALBUTEROL [Concomitant]

REACTIONS (3)
  - DYSPNOEA [None]
  - PARANASAL SINUS HYPERSECRETION [None]
  - SINUS DISORDER [None]
